FAERS Safety Report 7701405-3 (Version None)
Quarter: 2011Q3

REPORT INFORMATION
  Report Type: 
  Country: None (occurrence: None)
  Receive Date: 20110819
  Receipt Date: 20110819
  Transmission Date: 20111222
  Serious: Yes (Life-Threatening, Disabling)
  Sender: FDA-Public Use
  Company Number: None

PATIENT
  Age: 36 Year
  Sex: Male

DRUGS (1)
  1. TORADOL [Suspect]
     Dosage: 30 MG IV Q6HPRN, 15
     Dates: start: 20110513, end: 20110517

REACTIONS (1)
  - RENAL FAILURE ACUTE [None]
